FAERS Safety Report 6604801-0 (Version None)
Quarter: 2010Q1

REPORT INFORMATION
  Report Type: 
  Country: None (occurrence: None)
  Receive Date: 20100226
  Receipt Date: 20100127
  Transmission Date: 20100710
  Serious: No
  Sender: FDA-Public Use
  Company Number: JP-ROCHE-686811

PATIENT
  Age: 8 Year
  Sex: Male
  Weight: 29 kg

DRUGS (1)
  1. TAMIFLU [Suspect]
     Indication: DRUG USE FOR UNKNOWN INDICATION
     Dosage: REPORTED DRUG: TAMIFLU DRY SYRUP 3%(OSELTAMIVIR), FREQUENCY: 5/
     Route: 048

REACTIONS (2)
  - ACCIDENTAL OVERDOSE [None]
  - HYPOTHERMIA [None]
